FAERS Safety Report 5746047-4 (Version None)
Quarter: 2008Q2

REPORT INFORMATION
  Report Type: 
  Country: None (occurrence: None)
  Receive Date: 20080522
  Receipt Date: 20080513
  Transmission Date: 20081010
  Serious: Yes (Other)
  Sender: FDA-Public Use
  Company Number: SE-JNJFOC-20080502742

PATIENT
  Age: 63 Year
  Sex: Male

DRUGS (7)
  1. REMICADE [Suspect]
     Indication: RHEUMATOID ARTHRITIS
     Route: 042
  2. OMEPRAZOLE [Concomitant]
  3. SIMVASTATIN [Concomitant]
  4. INSULIN HUMAN [Concomitant]
  5. MEDROL [Concomitant]
  6. IMUREL [Concomitant]
  7. DIKLOFENAK [Concomitant]

REACTIONS (1)
  - OESOPHAGEAL CARCINOMA [None]
